FAERS Safety Report 9287182 (Version 1)
Quarter: 2013Q2

REPORT INFORMATION
  Report Type: Spontaneous
  Country: CA (occurrence: CA)
  Receive Date: 20130513
  Receipt Date: 20130513
  Transmission Date: 20140414
  Serious: Yes (Other)
  Sender: FDA-Public Use
  Company Number: CA-ELI_LILLY_AND_COMPANY-CA201305000486

PATIENT
  Age: 16 Year
  Sex: Male

DRUGS (2)
  1. PROZAC [Suspect]
     Dosage: UNK UNK, UNKNOWN
  2. ALCOHOL [Concomitant]
     Dosage: 1 DF, UNKNOWN

REACTIONS (3)
  - Loss of consciousness [Unknown]
  - Sexually inappropriate behaviour [Unknown]
  - Incorrect route of drug administration [Unknown]
